FAERS Safety Report 24354509 (Version 1)
Quarter: 2024Q3

REPORT INFORMATION
  Report Type: Spontaneous
  Country: US (occurrence: US)
  Receive Date: 20240923
  Receipt Date: 20240923
  Transmission Date: 20241017
  Serious: No
  Sender: SANOFI AVENTIS
  Company Number: US-SA-2024SA272855

PATIENT
  Age: 18 Year
  Sex: Female
  Weight: 52.16 kg

DRUGS (3)
  1. DUPIXENT [Suspect]
     Active Substance: DUPILUMAB
     Indication: Eosinophilic oesophagitis
     Dosage: 300 MG, QW
     Route: 058
  2. FLUTICASONE PROPIONATE HFA [Concomitant]
     Active Substance: FLUTICASONE PROPIONATE
     Dosage: UNK
  3. PROTONIX [Concomitant]
     Active Substance: PANTOPRAZOLE SODIUM
     Dosage: UNK

REACTIONS (5)
  - Injection site urticaria [Recovering/Resolving]
  - Injection site erythema [Recovering/Resolving]
  - Injection site pain [Unknown]
  - Injection site pruritus [Unknown]
  - Injection site swelling [Unknown]
